FAERS Safety Report 6643761-3 (Version None)
Quarter: 2010Q1

REPORT INFORMATION
  Report Type: 
  Country: None (occurrence: None)
  Receive Date: 20100316
  Receipt Date: 20100301
  Transmission Date: 20100710
  Serious: Yes (Other)
  Sender: FDA-Public Use
  Company Number: B0638426A

PATIENT

DRUGS (2)
  1. CHLORAMBUCIL [Suspect]
     Indication: NON-HODGKIN'S LYMPHOMA
     Dosage: CYCLIC / ORAL
     Route: 048
  2. RITUXIMAB [Suspect]
     Dosage: 375 MG/M2 / CYCLIC / INTRAVENOUS
     Route: 042

REACTIONS (1)
  - SKIN TOXICITY [None]
